FAERS Safety Report 16294995 (Version 1)
Quarter: 2019Q2

REPORT INFORMATION
  Report Type: Spontaneous
  Country: US (occurrence: US)
  Receive Date: 20190509
  Receipt Date: 20190509
  Transmission Date: 20190711
  Serious: No
  Sender: FDA-Public Use
  Company Number: US-ROCHE-2214752

PATIENT
  Sex: Male

DRUGS (2)
  1. ESBRIET [Suspect]
     Active Substance: PIRFENIDONE
     Indication: IDIOPATHIC PULMONARY FIBROSIS
     Dosage: 1 TABLET 3 TIMES DAILY X 1 WEEK, ?2 TABLETS 3 TIMES DAILY X 1 WEEK, ?3 TABLET 3 TIMES DAILY WITH MEA
     Route: 048
     Dates: start: 20180808
  2. ESBRIET [Suspect]
     Active Substance: PIRFENIDONE
     Route: 048
     Dates: start: 2019

REACTIONS (4)
  - Diarrhoea [Recovered/Resolved]
  - Diarrhoea [Not Recovered/Not Resolved]
  - Headache [Not Recovered/Not Resolved]
  - Malaise [Recovered/Resolved]
